FAERS Safety Report 9510084 (Version 2)
Quarter: 2013Q4

REPORT INFORMATION
  Report Type: Spontaneous
  Country: US (occurrence: US)
  Receive Date: 20130909
  Receipt Date: 20131017
  Transmission Date: 20140711
  Serious: No
  Sender: FDA-Public Use
  Company Number: US-PFIZER INC-2013258609

PATIENT
  Age: 61 Year
  Sex: Female
  Weight: 87.08 kg

DRUGS (1)
  1. NEURONTIN [Suspect]
     Indication: NEUROPATHY PERIPHERAL
     Dosage: 300 MG, 4X/DAY
     Route: 048
     Dates: start: 2003

REACTIONS (3)
  - Blood cholesterol increased [Unknown]
  - Vitamin D deficiency [Unknown]
  - Glycosylated haemoglobin increased [Unknown]
